FAERS Safety Report 6288988-8 (Version None)
Quarter: 2009Q3

REPORT INFORMATION
  Report Type: 
  Country: None (occurrence: None)
  Receive Date: 20090729
  Receipt Date: 20090717
  Transmission Date: 20100115
  Serious: Yes (Other)
  Sender: FDA-Public Use
  Company Number: PHHY2009GR19476

PATIENT
  Age: 81 Year
  Sex: Female

DRUGS (5)
  1. TASIGNA [Suspect]
     Indication: CHRONIC MYELOID LEUKAEMIA
     Dosage: 400 MG, DAILY
     Route: 048
     Dates: start: 20080501, end: 20090202
  2. NEORECORMON [Concomitant]
     Indication: ANAEMIA
     Dosage: 30000 IU, DAILY
     Route: 058
     Dates: start: 20040701
  3. ALLOPURINOL [Concomitant]
     Indication: HYPERURICAEMIA
     Dosage: 300 MG, DAILY
     Route: 048
     Dates: start: 20030501
  4. UNIMAZOLE [Concomitant]
     Indication: HYPERTHYROIDISM
     Dosage: 1 DF, DAILY
     Route: 048
     Dates: start: 20010101
  5. REMERON [Concomitant]
     Indication: DEMENTIA
     Dosage: 1 DF, BID
     Route: 048
     Dates: start: 20071001

REACTIONS (1)
  - EOSINOPHILIA [None]
